FAERS Safety Report 7629911-0 (Version None)
Quarter: 2011Q3

REPORT INFORMATION
  Report Type: 
  Country: None (occurrence: None)
  Receive Date: 20110722
  Receipt Date: 20110707
  Transmission Date: 20111222
  Serious: Yes (Other)
  Sender: FDA-Public Use
  Company Number: GB-WATSON-2011-10867

PATIENT
  Age: 40 Year
  Sex: Male

DRUGS (3)
  1. BECONASE [Suspect]
     Indication: ASTHMA
     Dosage: UNK
  2. FLUTICASONE PROPIONATE/SALMETEROL [Suspect]
     Indication: ASTHMA
     Dosage: UNK
  3. ALBUTEROL [Suspect]
     Indication: ASTHMA
     Dosage: UNK

REACTIONS (2)
  - DRUG INEFFECTIVE [None]
  - ASTHMA [None]
